FAERS Safety Report 12623357 (Version 2)
Quarter: 2016Q3

REPORT INFORMATION
  Report Type: Report from Study
  Country: US (occurrence: US)
  Receive Date: 20160804
  Receipt Date: 20160817
  Transmission Date: 20161109
  Serious: Yes (Other)
  Sender: FDA-Public Use
  Company Number: US-GILEAD-2016-0226287

PATIENT
  Age: 66 Year
  Sex: Female

DRUGS (26)
  1. DEXILANT [Concomitant]
     Active Substance: DEXLANSOPRAZOLE
  2. CARDIZEM [Concomitant]
     Active Substance: DILTIAZEM HYDROCHLORIDE
  3. NORCO [Concomitant]
     Active Substance: ACETAMINOPHEN\HYDROCODONE BITARTRATE
  4. COUMADIN [Concomitant]
     Active Substance: WARFARIN SODIUM
  5. AMBRISENTAN [Suspect]
     Active Substance: AMBRISENTAN
     Dosage: 5 MG, QD
     Route: 048
  6. CALCIUM + VITAMIN D                /00944201/ [Concomitant]
     Active Substance: CALCIUM CARBONATE\CHOLECALCIFEROL
  7. VITAMIN B12 [Concomitant]
     Active Substance: CYANOCOBALAMIN
  8. VITAMIN D3 [Concomitant]
     Active Substance: CHOLECALCIFEROL
  9. AMBRISENTAN [Suspect]
     Active Substance: AMBRISENTAN
     Indication: PRODUCT USED FOR UNKNOWN INDICATION
     Dosage: 10 MG, UNK
     Route: 065
     Dates: start: 20120424
  10. TYLENOL [Concomitant]
     Active Substance: ACETAMINOPHEN
  11. OMNICEF [Concomitant]
     Active Substance: CEFDINIR
  12. COLACE [Concomitant]
     Active Substance: DOCUSATE SODIUM
  13. ARNUITY ELLIPTA [Concomitant]
     Active Substance: FLUTICASONE FUROATE
  14. LACTULOSE. [Concomitant]
     Active Substance: LACTULOSE
  15. PREDNISONE. [Concomitant]
     Active Substance: PREDNISONE
  16. TETRAHYDROZOLINE HCL [Concomitant]
  17. ULTRAM [Concomitant]
     Active Substance: TRAMADOL HYDROCHLORIDE
  18. GLYCOLAX [Concomitant]
     Active Substance: POLYETHYLENE GLYCOL 3350
  19. LASIX [Concomitant]
     Active Substance: FUROSEMIDE
  20. AYR SALINE [Concomitant]
  21. ASPIRIN                            /00002701/ [Concomitant]
     Active Substance: ASPIRIN
  22. AZELASTINE HCL [Concomitant]
     Active Substance: AZELASTINE HYDROCHLORIDE
  23. BENTYL [Concomitant]
     Active Substance: DICYCLOMINE HYDROCHLORIDE
  24. PRINIVIL [Concomitant]
     Active Substance: LISINOPRIL
  25. SIMETHICONE (DIMETHICONE) [Concomitant]
     Active Substance: DIMETHICONE
  26. NASONEX [Concomitant]
     Active Substance: MOMETASONE FUROATE

REACTIONS (2)
  - Oedema peripheral [Unknown]
  - Cardiac failure [Unknown]

NARRATIVE: CASE EVENT DATE: 20160803
